FAERS Safety Report 5491364-9 (Version None)
Quarter: 2007Q4

REPORT INFORMATION
  Report Type: 
  Country: None (occurrence: None)
  Receive Date: 20071017
  Receipt Date: 20071003
  Transmission Date: 20080405
  Serious: Yes (Other)
  Sender: FDA-Public Use
  Company Number: 2007AP001100

PATIENT
  Sex: Female

DRUGS (12)
  1. RANITIDINE HYDROCHLORIDE [Suspect]
     Indication: PROPHYLACTIC CHEMOTHERAPY
     Dosage: 300 MG; 1X, 300 MG; 1X, 300 MG; 1X
     Dates: start: 20070711, end: 20070711
  2. RANITIDINE HYDROCHLORIDE [Suspect]
     Indication: PROPHYLACTIC CHEMOTHERAPY
     Dosage: 300 MG; 1X, 300 MG; 1X, 300 MG; 1X
     Dates: start: 20070801, end: 20070801
  3. RANITIDINE HYDROCHLORIDE [Suspect]
     Indication: PROPHYLACTIC CHEMOTHERAPY
     Dosage: 300 MG; 1X, 300 MG; 1X, 300 MG; 1X
     Dates: start: 20070822, end: 20070822
  4. RANITIDINE HYDROCHLORIDE [Suspect]
     Indication: PROPHYLACTIC CHEMOTHERAPY
     Dosage: 300 MG; 1X, 300 MG; 1X, 300 MG; 1X
     Dates: start: 20070620, end: 20071004
  5. PACLITAXEL  294 MG; IV_INF; IV; 1X, 294 MG; IV_INF; IV; 1X, 294 MG; IV [Suspect]
     Indication: FALLOPIAN TUBE CANCER
     Dosage: 294 MG; 1X IV
     Route: 042
     Dates: start: 20070711, end: 20070711
  6. PACLITAXEL  294 MG; IV_INF; IV; 1X, 294 MG; IV_INF; IV; 1X, 294 MG; IV [Suspect]
     Indication: FALLOPIAN TUBE CANCER
     Dosage: 294 MG; 1X IV
     Route: 042
     Dates: start: 20070822, end: 20070822
  7. PACLITAXEL  294 MG; IV_INF; IV; 1X, 294 MG; IV_INF; IV; 1X, 294 MG; IV [Suspect]
     Indication: FALLOPIAN TUBE CANCER
     Dosage: 294 MG; 1X IV
     Route: 042
     Dates: start: 20070620, end: 20071004
  8. CARBOPLATIN 500 MG; IV_INF; IV; 1X, 500 MG; IV_INF; IV; 1X, 500 MG; IV [Suspect]
     Indication: CHEMOTHERAPY
     Dosage: 500 MG; 1X IV
     Route: 042
     Dates: start: 20070711, end: 20070801
  9. CARBOPLATIN 500 MG; IV_INF; IV; 1X, 500 MG; IV_INF; IV; 1X, 500 MG; IV [Suspect]
     Indication: CHEMOTHERAPY
     Dosage: 500 MG; 1X IV
     Route: 042
     Dates: start: 20070620
  10. CARBOPLATIN 500 MG; IV_INF; IV; 1X, 500 MG; IV_INF; IV; 1X, 500 MG; IV [Suspect]
     Indication: CHEMOTHERAPY
     Dosage: 500 MG; 1X IV
     Route: 042
     Dates: start: 20070801
  11. CARBOPLATIN 500 MG; IV_INF; IV; 1X, 500 MG; IV_INF; IV; 1X, 500 MG; IV [Suspect]
     Indication: CHEMOTHERAPY
     Dosage: 500 MG; 1X IV
     Route: 042
     Dates: start: 20070822
  12. GABAPENTIN [Suspect]
     Indication: NEUROTOXICITY
     Dosage: 0.5 TAB; PO
     Route: 048

REACTIONS (7)
  - ABDOMINAL PAIN UPPER [None]
  - DYSGEUSIA [None]
  - FEELING COLD [None]
  - MALAISE [None]
  - NAIL DISORDER [None]
  - NEUROTOXICITY [None]
  - OEDEMA PERIPHERAL [None]
